FAERS Safety Report 5482339-4 (Version None)
Quarter: 2007Q4

REPORT INFORMATION
  Report Type: 
  Country: None (occurrence: None)
  Receive Date: 20071011
  Receipt Date: 20071004
  Transmission Date: 20080405
  Serious: Yes (Other)
  Sender: FDA-Public Use
  Company Number: US-AVENTIS-200716661US

PATIENT
  Sex: Female

DRUGS (16)
  1. LANTUS [Suspect]
     Indication: TYPE 2 DIABETES MELLITUS
     Route: 051
     Dates: start: 20070601
  2. LANTUS [Suspect]
     Route: 051
  3. LANTUS [Suspect]
     Route: 051
     Dates: start: 20070907
  4. HUMALOG [Suspect]
     Indication: TYPE 2 DIABETES MELLITUS
     Dosage: FREQUENCY: BEFORE MEALS
     Route: 051
     Dates: start: 20070601, end: 20070907
  5. DRUG USED IN DIABETES [Suspect]
     Indication: TYPE 2 DIABETES MELLITUS
     Dosage: FREQUENCY: BEFORE MEALS
     Route: 058
     Dates: start: 20070601
  6. DRUG USED IN DIABETES [Suspect]
     Indication: WEIGHT CONTROL
     Dosage: FREQUENCY: BEFORE MEALS
     Route: 058
     Dates: start: 20070601
  7. METFORMIN HCL [Concomitant]
     Dosage: DOSE: UNK
  8. PLAVIX [Concomitant]
     Dosage: DOSE: UNK
  9. NITRO-BID [Concomitant]
     Dosage: DOSE: UNK
  10. ZOCOR [Concomitant]
     Dosage: DOSE: UNK
  11. ATENOLOL [Concomitant]
     Dosage: DOSE: UNK
  12. PROZAC [Concomitant]
     Dosage: DOSE: UNK
  13. XANAX [Concomitant]
     Dosage: DOSE: UNK
  14. BYETTA [Concomitant]
     Dosage: DOSE: UNK
     Dates: start: 20070101, end: 20070601
  15. PRANDIN                            /01393601/ [Concomitant]
     Dosage: DOSE: UNK
     Dates: end: 20070601
  16. GLIPIZIDE [Concomitant]
     Dates: end: 20070601

REACTIONS (1)
  - WEIGHT INCREASED [None]
